FAERS Safety Report 9025578 (Version 1)
Quarter: 2013Q1

REPORT INFORMATION
  Report Type: Spontaneous
  Country: US (occurrence: US)
  Receive Date: 20130122
  Receipt Date: 20130122
  Transmission Date: 20140127
  Serious: Yes (Other)
  Sender: FDA-Public Use
  Company Number: US-ELI_LILLY_AND_COMPANY-US201301004024

PATIENT
  Age: 74 None
  Sex: Male
  Weight: 102.4 kg

DRUGS (10)
  1. BYETTA [Suspect]
     Indication: INSULIN-REQUIRING TYPE 2 DIABETES MELLITUS
     Dosage: 5 UG, BID
     Route: 058
     Dates: start: 200506
  2. BYETTA [Suspect]
     Dosage: 10 UG, BID
     Route: 058
  3. METFORMIN [Concomitant]
     Indication: INSULIN-REQUIRING TYPE 2 DIABETES MELLITUS
     Dosage: 500 MG, TID
     Route: 048
  4. GLIPIZIDE [Concomitant]
     Indication: INSULIN-REQUIRING TYPE 2 DIABETES MELLITUS
     Dosage: 5 MG, TID
     Route: 048
  5. NOVOLIN N [Concomitant]
     Indication: INSULIN-REQUIRING TYPE 2 DIABETES MELLITUS
     Dosage: 40 U, EACH EVENING
     Route: 058
  6. TOPROL [Concomitant]
     Dosage: 25 MG, QD
     Route: 048
  7. PLAVIX [Concomitant]
     Dosage: 75 MG, QD
     Route: 048
  8. BENAZEPRIL/HCTZ [Concomitant]
     Dosage: 1 DF, QD
     Route: 048
  9. AMLODIPINE [Concomitant]
     Dosage: 10 MG, QD
     Route: 048
  10. ADVAIR [Concomitant]
     Dosage: 1 DF, BID
     Route: 055

REACTIONS (7)
  - Neoplasm malignant [Not Recovered/Not Resolved]
  - Spinal disorder [Not Recovered/Not Resolved]
  - Back pain [Not Recovered/Not Resolved]
  - Arthritis [Unknown]
  - Blood glucose increased [Recovered/Resolved]
  - Weight decreased [Unknown]
  - Hypophagia [Unknown]
